FAERS Safety Report 17620745 (Version 1)
Quarter: 2020Q2

REPORT INFORMATION
  Report Type: Spontaneous
  Country: US (occurrence: US)
  Receive Date: 20200401
  Receipt Date: 20200401
  Transmission Date: 20200713
  Serious: No
  Sender: FDA-Public Use
  Company Number: None

PATIENT
  Age: 57 Year
  Sex: Male

DRUGS (1)
  1. CAPECITABINE TAB 500MG [Suspect]
     Active Substance: CAPECITABINE
     Route: 048
     Dates: start: 202002, end: 202003

REACTIONS (3)
  - Dizziness [None]
  - Condition aggravated [None]
  - Neuropathy peripheral [None]

NARRATIVE: CASE EVENT DATE: 20200401
